FAERS Safety Report 7955837-9 (Version None)
Quarter: 2011Q4

REPORT INFORMATION
  Report Type: 
  Country: None (occurrence: None)
  Receive Date: 20111205
  Receipt Date: 20111128
  Transmission Date: 20120403
  Serious: No
  Sender: FDA-Public Use
  Company Number: US-BIOGENIDEC-2010BI036769

PATIENT
  Sex: Female

DRUGS (5)
  1. AVONEX [Concomitant]
     Indication: MULTIPLE SCLEROSIS
     Route: 030
     Dates: start: 20100901
  2. TYSABRI [Suspect]
     Indication: MULTIPLE SCLEROSIS
     Route: 042
     Dates: start: 20100914, end: 20110401
  3. ZYRTEC [Concomitant]
     Indication: ALLERGY TO ANIMAL
  4. COPAXONE [Concomitant]
     Indication: MULTIPLE SCLEROSIS
  5. BETASERON [Concomitant]
     Indication: MULTIPLE SCLEROSIS

REACTIONS (38)
  - JOINT SWELLING [None]
  - PARAESTHESIA [None]
  - SKIN WARM [None]
  - FEELING COLD [None]
  - DYSPHONIA [None]
  - MUSCULAR WEAKNESS [None]
  - INSOMNIA [None]
  - ABASIA [None]
  - ASTHENIA [None]
  - ARTHRITIS [None]
  - NECK PAIN [None]
  - BACK PAIN [None]
  - FACIAL PAIN [None]
  - STRESS [None]
  - FEELING ABNORMAL [None]
  - GOUT [None]
  - DIZZINESS [None]
  - MULTIPLE SCLEROSIS RELAPSE [None]
  - MUSCLE SPASTICITY [None]
  - MUSCLE SPASMS [None]
  - DYSSTASIA [None]
  - HEADACHE [None]
  - HYPOAESTHESIA [None]
  - PERIPHERAL COLDNESS [None]
  - MUSCLE STRAIN [None]
  - GAIT DISTURBANCE [None]
  - MEMORY IMPAIRMENT [None]
  - MULTIPLE SCLEROSIS [None]
  - FLUSHING [None]
  - SCIATICA [None]
  - ANXIETY [None]
  - PAIN [None]
  - MAJOR DEPRESSION [None]
  - SINUSITIS [None]
  - FATIGUE [None]
  - PAIN IN EXTREMITY [None]
  - HYPERTENSION [None]
  - ORAL HERPES [None]
